FAERS Safety Report 25666334 (Version 1)
Quarter: 2025Q3

REPORT INFORMATION
  Report Type: Spontaneous
  Country: US (occurrence: US)
  Receive Date: 20250811
  Receipt Date: 20250811
  Transmission Date: 20251020
  Serious: No
  Sender: MYLAN
  Company Number: US-MYLANLABS-2025M1063554

PATIENT
  Sex: Male

DRUGS (1)
  1. FENTANYL TRANSDERMAL SYSTEM [Suspect]
     Active Substance: FENTANYL
     Indication: Pain
     Dosage: 25 MICROGRAM, QH (PER HOUR)

REACTIONS (6)
  - Application site pruritus [Unknown]
  - Application site rash [Unknown]
  - Asthenia [Unknown]
  - Drug ineffective [Unknown]
  - Product substitution issue [Unknown]
  - Loss of personal independence in daily activities [Unknown]
